FAERS Safety Report 18344297 (Version 2)
Quarter: 2020Q4

REPORT INFORMATION
  Report Type: Spontaneous
  Country: US (occurrence: US)
  Receive Date: 20201005
  Receipt Date: 20201123
  Transmission Date: 20210114
  Serious: No
  Sender: FDA-Public Use
  Company Number: US-JNJFOC-20200950327

PATIENT
  Age: 68 Year
  Sex: Female
  Weight: 69.92 kg

DRUGS (1)
  1. REMICADE [Suspect]
     Active Substance: INFLIXIMAB
     Indication: RHEUMATOID ARTHRITIS
     Route: 042

REACTIONS (4)
  - Dehydration [Unknown]
  - Off label use [Unknown]
  - Infusion related reaction [Unknown]
  - Vascular rupture [Unknown]

NARRATIVE: CASE EVENT DATE: 20200911
